FAERS Safety Report 7098907-2 (Version None)
Quarter: 2010Q4

REPORT INFORMATION
  Report Type: 
  Country: None (occurrence: None)
  Receive Date: 20101112
  Receipt Date: 20101105
  Transmission Date: 20110411
  Serious: Yes (Other)
  Sender: FDA-Public Use
  Company Number: US-ROCHE-739807

PATIENT
  Age: 46 Year
  Sex: Male
  Weight: 86.2 kg

DRUGS (5)
  1. CLONAZEPAM [Suspect]
     Indication: ANXIETY
     Dosage: OTHER INDICATION: SLEEP PROBLEM
     Route: 065
  2. AMBIEN [Suspect]
     Route: 065
  3. PROZAC [Suspect]
     Route: 065
  4. CHANTIX [Suspect]
     Indication: SMOKING CESSATION THERAPY
     Dosage: FORM: FILM COATED TABLET
     Route: 048
     Dates: start: 20090701
  5. CHANTIX [Suspect]
     Route: 048
     Dates: end: 20090901

REACTIONS (6)
  - ANXIETY [None]
  - DEPRESSION [None]
  - PANIC ATTACK [None]
  - SENSATION OF PRESSURE [None]
  - SLEEP DISORDER [None]
  - WEIGHT DECREASED [None]
